FAERS Safety Report 15255602 (Version 1)
Quarter: 2018Q3

REPORT INFORMATION
  Report Type: Spontaneous
  Country: US (occurrence: US)
  Receive Date: 20180808
  Receipt Date: 20180808
  Transmission Date: 20181010
  Serious: Yes (Hospitalization)
  Sender: FDA-Public Use
  Company Number: US-TEVA-2018-US-938898

PATIENT
  Age: 74 Year
  Sex: Female

DRUGS (2)
  1. MEPOLIZUMAB [Suspect]
     Active Substance: MEPOLIZUMAB
     Indication: HYPEREOSINOPHILIC SYNDROME
     Route: 065
  2. PREDNISONE. [Suspect]
     Active Substance: PREDNISONE
     Indication: PSORIATIC ARTHROPATHY
     Dosage: LOW DOSE
     Route: 065

REACTIONS (5)
  - Respiratory failure [Unknown]
  - Symptom masked [Unknown]
  - Hypereosinophilic syndrome [Unknown]
  - Off label use [Unknown]
  - Interstitial lung disease [Unknown]
